FAERS Safety Report 10335287 (Version 1)
Quarter: 2014Q3

REPORT INFORMATION
  Report Type: Spontaneous
  Country: US (occurrence: US)
  Receive Date: 20140723
  Receipt Date: 20140723
  Transmission Date: 20150326
  Serious: No
  Sender: FDA-Public Use
  Company Number: US-ABBVIE-13P-163-1122573-00

PATIENT
  Sex: Female

DRUGS (1)
  1. SYNTHROID [Suspect]
     Active Substance: LEVOTHYROXINE SODIUM
     Indication: PRODUCT USED FOR UNKNOWN INDICATION

REACTIONS (8)
  - Blepharospasm [Unknown]
  - Constipation [Unknown]
  - Weight increased [Unknown]
  - Abdominal pain upper [Unknown]
  - Alopecia [Unknown]
  - Malaise [Unknown]
  - Palpitations [Unknown]
  - Fluid retention [Unknown]
